FAERS Safety Report 9230636 (Version 1)
Quarter: 2013Q1

REPORT INFORMATION
  Report Type: Spontaneous
  Country: US (occurrence: None)
  Receive Date: 20121031
  Receipt Date: 20121031
  Transmission Date: 20140127
  Serious: No
  Sender: FDA-Public Use
  Company Number: PHEH2012US016254

PATIENT
  Sex: Female

DRUGS (2)
  1. GILENYA (FTY)CAPSULE, 0.5MG [Suspect]
     Route: 048
  2. NUVARING (ETHINYLESTRADIOL, ETONOGESTREL) [Concomitant]

REACTIONS (3)
  - Nausea [None]
  - Disturbance in attention [None]
  - Musculoskeletal stiffness [None]
